FAERS Safety Report 12867069 (Version 1)
Quarter: 2016Q4

REPORT INFORMATION
  Report Type: Spontaneous
  Country: US (occurrence: US)
  Receive Date: 20161020
  Receipt Date: 20161020
  Transmission Date: 20170207
  Serious: No
  Sender: FDA-Public Use
  Company Number: US-JAZZ-2016-US-014571

PATIENT
  Sex: Female

DRUGS (11)
  1. XYREM [Suspect]
     Active Substance: SODIUM OXYBATE
     Dosage: 3 G, BID
     Route: 048
     Dates: start: 200710, end: 200903
  2. ZETIA [Concomitant]
     Active Substance: EZETIMIBE
  3. XYREM [Suspect]
     Active Substance: SODIUM OXYBATE
     Dosage: 3.25 G, BID
     Route: 048
     Dates: start: 200903
  4. AMITRIPTYLINE HCL [Concomitant]
     Active Substance: AMITRIPTYLINE
  5. ZOLOFT [Concomitant]
     Active Substance: SERTRALINE HYDROCHLORIDE
  6. KLONOPIN [Concomitant]
     Active Substance: CLONAZEPAM
  7. NIASPAN [Concomitant]
     Active Substance: NIACIN
  8. ULTRAM [Concomitant]
     Active Substance: TRAMADOL HYDROCHLORIDE
  9. XYREM [Suspect]
     Active Substance: SODIUM OXYBATE
     Indication: NARCOLEPSY
     Dosage: 2.25 G, BID
     Route: 048
     Dates: start: 200709, end: 200710
  10. ATENOLOL. [Concomitant]
     Active Substance: ATENOLOL
  11. CHLORDIAZEPOXIDE AND AMITRIPTYLINE HYDROCHLOR [Concomitant]

REACTIONS (1)
  - Skin papilloma [Unknown]
